FAERS Safety Report 9357042 (Version 2)
Quarter: 2013Q3

REPORT INFORMATION
  Report Type: Report from Study
  Country: BE (occurrence: BE)
  Receive Date: 20130620
  Receipt Date: 20130828
  Transmission Date: 20140515
  Serious: Yes (Disabling)
  Sender: FDA-Public Use
  Company Number: BE-ROCHE-1236986

PATIENT
  Age: 33 Year
  Sex: Male
  Weight: 82 kg

DRUGS (5)
  1. PEG-INTERFERON ALFA 2A [Suspect]
     Indication: HEPATITIS C
     Route: 058
     Dates: start: 20120111, end: 20121124
  2. RIBAVIRIN [Suspect]
     Indication: HEPATITIS C
     Route: 048
     Dates: start: 20120111, end: 20121124
  3. TMC435 (NS3/4A PROTEASE INHIBITOR) [Suspect]
     Indication: HEPATITIS C
     Route: 048
     Dates: start: 20120111, end: 20120404
  4. BROMAZEPAM [Concomitant]
     Route: 065
  5. METHADON [Concomitant]
     Route: 065

REACTIONS (1)
  - Papilloedema [Recovered/Resolved with Sequelae]
